FAERS Safety Report 6944554-X (Version None)
Quarter: 2010Q3

REPORT INFORMATION
  Report Type: 
  Country: None (occurrence: None)
  Receive Date: 20100827
  Receipt Date: 20100818
  Transmission Date: 20110219
  Serious: Yes (Other)
  Sender: FDA-Public Use
  Company Number: TR-ELI_LILLY_AND_COMPANY-TR201008005810

PATIENT
  Weight: 2.8 kg

DRUGS (1)
  1. HUMULIN N [Suspect]
     Indication: GESTATIONAL DIABETES
     Dosage: 14 U, DAILY (1/D)
     Route: 064
     Dates: end: 20100724

REACTIONS (2)
  - DEHYDRATION [None]
  - DRUG EXPOSURE DURING PREGNANCY [None]
